FAERS Safety Report 8379389-7 (Version None)
Quarter: 2012Q2

REPORT INFORMATION
  Report Type: 
  Country: None (occurrence: None)
  Receive Date: 20120523
  Receipt Date: 20120517
  Transmission Date: 20120825
  Serious: Yes (Hospitalization, Other)
  Sender: FDA-Public Use
  Company Number: US-BAYER-2011-086479

PATIENT
  Age: 39 Year
  Sex: Female

DRUGS (41)
  1. TYLENOL [Concomitant]
     Indication: HEADACHE
     Dosage: UNK UNK, PRN
  2. TYLENOL [Concomitant]
     Dosage: 325 MG, UNK
     Route: 048
     Dates: start: 20091105
  3. AVANDIA [Concomitant]
     Dosage: 4 MG, BID
     Route: 048
     Dates: start: 20091113, end: 20091124
  4. POTASSIUM CHLORIDE [Concomitant]
  5. VALSARTAN [Concomitant]
     Dosage: 320 MG, BID
     Route: 048
     Dates: start: 20091105, end: 20091113
  6. PROCHLORPERAZINE [Concomitant]
     Dosage: 10 MG, UNK
     Route: 042
     Dates: start: 20091105
  7. FENTANYL-100 [Concomitant]
     Dosage: 50 ?G EVERY 5 MINUTES AS NEEDED
     Route: 042
     Dates: start: 20091106
  8. METRONIDAZOLE [Concomitant]
     Dosage: 500 MG, BID
     Route: 048
     Dates: start: 20091110, end: 20091112
  9. UNCODEABLE ^UNCLASSIFIABLE^ [Concomitant]
     Dosage: 150 MG, BID
     Route: 048
     Dates: start: 20091123
  10. FEOSTAT [Concomitant]
     Route: 042
  11. BENICAR [Concomitant]
     Dosage: 40 MG, BID
     Route: 048
     Dates: start: 20091105, end: 20091124
  12. DIPHENHYDRAMINE HCL [Concomitant]
     Dosage: 25 MG, UNK
     Route: 042
     Dates: start: 20091105
  13. IBUPROFEN [Concomitant]
     Dosage: 600 MG, EVERY 6 HOURS AS NEEDED
     Route: 048
     Dates: start: 20091108
  14. PROMETHAZINE [Concomitant]
     Indication: NAUSEA
     Dosage: 12.5 MG, EVERY 4 HOURS AS NEEDED
     Route: 042
     Dates: start: 20091108, end: 20091109
  15. ONDANSETRON [Concomitant]
     Dosage: 4 MG, EVERY 6 HOURS AS NEEDED
     Route: 042
     Dates: start: 20091109
  16. PROTONIX [Concomitant]
     Dosage: 40 MG, QD
     Route: 048
     Dates: start: 20090902, end: 20091124
  17. GENTAMICIN [Concomitant]
     Dosage: 450 MG, QD
     Route: 042
     Dates: start: 20091108, end: 20091110
  18. INSULIN ASPART [Concomitant]
     Dosage: PER SLIDING SCALE
     Route: 058
     Dates: start: 20091109, end: 20091113
  19. FEOSOL [Concomitant]
     Dosage: 325 MG, TID
     Route: 048
     Dates: start: 20091110, end: 20091113
  20. YASMIN [Suspect]
     Dosage: UNK
     Dates: start: 20091001
  21. DROSPIRENONE AND ETHINYL ESTRADIOL [Suspect]
     Indication: VAGINAL HAEMORRHAGE
     Dosage: UNK
     Dates: start: 20091001
  22. LUPRON [Concomitant]
     Dosage: 3.75 MG, UNK
  23. CIPROFLOXACIN [Concomitant]
     Dosage: 250 MG, UNK
     Route: 048
  24. EPOETIN ALFA [Concomitant]
     Dosage: 60000 U, ONCE
     Route: 058
     Dates: start: 20091111
  25. OXYCODONE HCL [Concomitant]
     Dosage: 5 MG, UNK
     Route: 048
     Dates: start: 20091105
  26. CIPROFLOXACIN HCL [Concomitant]
     Dosage: 500 MG, BID
     Route: 048
     Dates: start: 20091110, end: 20091112
  27. NORVASC [Concomitant]
     Dosage: 10 MG, QD
     Route: 048
     Dates: start: 20091124
  28. LIPITOR [Concomitant]
     Dosage: 10 MG, QD
     Route: 048
     Dates: start: 20091124
  29. YAZ [Suspect]
     Dosage: UNK
     Dates: start: 20091001
  30. CLINDAMYCIN [Concomitant]
     Dosage: 900 MG, TID
     Route: 042
     Dates: start: 20091108, end: 20091110
  31. MAXIDEX [Concomitant]
     Dosage: 125 MG, QD
     Route: 048
     Dates: start: 20091124
  32. PROCRIT [Concomitant]
     Indication: ANAEMIA
  33. TYLENOL [Concomitant]
     Dosage: 650 MG, EVERY 6 HOURS AS NEEDED
     Route: 048
     Dates: start: 20091107, end: 20091109
  34. TRIAMTERENE AND HYDROCHLOROTHIAZIDE [Concomitant]
     Dosage: 37.5 MG - 25 MG, QD
     Route: 048
     Dates: start: 20090828, end: 20091105
  35. CIPROFLOXACIN HCL [Concomitant]
     Dosage: 400 MG, BID
     Route: 042
     Dates: start: 20091108, end: 20091110
  36. IRON [Concomitant]
     Dosage: UNK
     Route: 042
     Dates: start: 20091105
  37. NITROGLYCERIN [Concomitant]
  38. OXYCODONE AND ACETAMINOPHEN [Concomitant]
     Indication: PAIN
     Dosage: 5-325 MG, 2 TABLETS EVERY 4 HOURS AS NEEDED
     Dates: start: 20091105, end: 20091108
  39. BISACODYL [Concomitant]
     Dosage: 10 MG, UNK
     Route: 054
     Dates: start: 20091108
  40. METFORMIN HCL [Concomitant]
     Dosage: 500 MG, BID
     Route: 048
     Dates: start: 20091108, end: 20091124
  41. ONDANSETRON [Concomitant]
     Indication: NAUSEA
     Dosage: 8 MG, TWICE A DAY AS NEEDED
     Route: 048
     Dates: start: 20091111, end: 20091113

REACTIONS (8)
  - DEEP VEIN THROMBOSIS [None]
  - MYOCARDIAL INFARCTION [None]
  - FEAR OF DISEASE [None]
  - PULMONARY EMBOLISM [None]
  - INJURY [None]
  - GALLBLADDER DISORDER [None]
  - CEREBROVASCULAR ACCIDENT [None]
  - PAIN [None]
